FAERS Safety Report 15903984 (Version 1)
Quarter: 2019Q1

REPORT INFORMATION
  Report Type: Report from Study
  Country: None (occurrence: GB)
  Receive Date: 20190204
  Receipt Date: 20190204
  Transmission Date: 20190417
  Serious: Yes (Other)
  Sender: FDA-Public Use
  Company Number: GB-ABBVIE-19S-167-2642291-00

PATIENT
  Sex: Male

DRUGS (1)
  1. DUODOPA [Suspect]
     Active Substance: CARBIDOPA\LEVODOPA
     Indication: PARKINSON^S DISEASE
     Dosage: 100ML CASSETTE, 5MG/1ML, 20MG/1ML?1 CASSETTE DAILY
     Route: 050

REACTIONS (5)
  - Anxiety [Unknown]
  - Fall [Unknown]
  - Angina pectoris [Unknown]
  - Abnormal dreams [Unknown]
  - Aggression [Unknown]

NARRATIVE: CASE EVENT DATE: 2018
